FAERS Safety Report 14379082 (Version 1)
Quarter: 2018Q1

REPORT INFORMATION
  Report Type: Spontaneous
  Country: GB (occurrence: GB)
  Receive Date: 20180112
  Receipt Date: 20180112
  Transmission Date: 20180509
  Serious: Yes (Disabling, Other)
  Sender: FDA-Public Use
  Company Number: GB-ROCHE-2052925

PATIENT
  Age: 78 Year
  Sex: Male
  Weight: 46 kg

DRUGS (9)
  1. FENTANYL. [Concomitant]
     Active Substance: FENTANYL
     Dosage: APPLY AS PER DISCHARGE LETTER
     Route: 065
     Dates: start: 20170619
  2. ORAMORPH [Concomitant]
     Active Substance: MORPHINE SULFATE
     Dosage: 2.5MGS/1.25MLS 4 HOURLY IF REQUIRED?AS REQUIRED
     Route: 065
     Dates: start: 20170731
  3. CASSIA SENNA [Concomitant]
     Dosage: ONE OR TWO TO BE TAKEN AT NIGHT IF NEEDED (AS REQUIRED)
     Route: 065
     Dates: start: 20170606
  4. SINEMET [Concomitant]
     Active Substance: CARBIDOPA\LEVODOPA
     Route: 065
     Dates: start: 20170606
  5. TINZAPARIN [Concomitant]
     Active Substance: TINZAPARIN
     Dosage: AS DIRECTED
     Route: 058
     Dates: start: 20171009, end: 20171028
  6. MORPHINE SULFATE. [Concomitant]
     Active Substance: MORPHINE SULFATE
     Dosage: 1.25MLS - 2.5MLS FOUR HOURLY, MAX FOUR TIMES DAILY?AS REQUIRED
     Route: 065
     Dates: start: 20171009, end: 20171023
  7. SINEMET [Concomitant]
     Active Substance: CARBIDOPA\LEVODOPA
     Dosage: AT NIGHT AROUND 10PM
     Route: 065
     Dates: start: 20170919
  8. PARACETAMOL [Concomitant]
     Active Substance: ACETAMINOPHEN
     Indication: PAIN
     Dosage: TAKE 2 UP TO 4 TIMES A DAY AS REQUIRED??AS REQUIRED
     Route: 065
     Dates: start: 20171010, end: 20171016
  9. CLONAZEPAM. [Suspect]
     Active Substance: CLONAZEPAM
     Indication: PRODUCT USED FOR UNKNOWN INDICATION
     Route: 065

REACTIONS (6)
  - Decreased appetite [Recovered/Resolved]
  - Fall [Unknown]
  - Anal incontinence [Unknown]
  - Malaise [Recovered/Resolved]
  - Movement disorder [Unknown]
  - Urinary incontinence [Unknown]

NARRATIVE: CASE EVENT DATE: 20171129
